FAERS Safety Report 9480862 (Version 2)
Quarter: 2013Q3

REPORT INFORMATION
  Report Type: Spontaneous
  Country: US (occurrence: US)
  Receive Date: 20130828
  Receipt Date: 20130828
  Transmission Date: 20140515
  Serious: Yes (Hospitalization, Other)
  Sender: FDA-Public Use
  Company Number: US-AMGEN-KDL130708

PATIENT
  Age: 63 Year
  Sex: Female

DRUGS (3)
  1. ENBREL [Suspect]
     Indication: RHEUMATOID ARTHRITIS
     Dosage: 50 MG, QWK
     Route: 058
     Dates: start: 20041201
  2. METHOTREXATE [Concomitant]
     Dosage: 17.5 MG, QWK
     Dates: start: 200107
  3. MELOXICAM [Concomitant]
     Dosage: 15 MG, QD
     Dates: start: 200502

REACTIONS (3)
  - Colostomy closure [Unknown]
  - Atypical pneumonia [Unknown]
  - Odontogenic cyst [Unknown]
